FAERS Safety Report 7214069-2 (Version None)
Quarter: 2011Q1

REPORT INFORMATION
  Report Type: 
  Country: None (occurrence: None)
  Receive Date: 20110107
  Receipt Date: 20101230
  Transmission Date: 20110831
  Serious: No
  Sender: FDA-Public Use
  Company Number: US-BIOGENIDEC-2010BI045310

PATIENT
  Age: 62 Year
  Sex: Male

DRUGS (1)
  1. AVONEX [Suspect]
     Indication: MULTIPLE SCLEROSIS
     Route: 030
     Dates: start: 20101217

REACTIONS (8)
  - PLATELET COUNT DECREASED [None]
  - INFECTION [None]
  - INJECTION SITE PAIN [None]
  - OROPHARYNGEAL PAIN [None]
  - TONGUE COATED [None]
  - WHITE BLOOD CELL COUNT INCREASED [None]
  - MALAISE [None]
  - INFLUENZA LIKE ILLNESS [None]
